FAERS Safety Report 16958922 (Version 6)
Quarter: 2024Q4

REPORT INFORMATION
  Report Type: Report from Study
  Country: JP (occurrence: JP)
  Receive Date: 20191024
  Receipt Date: 20241111
  Transmission Date: 20250115
  Serious: Yes (Hospitalization, Other)
  Sender: GILEAD
  Company Number: JP-JT-EVA-201803515-GILEAD-001

PATIENT
  Age: 28 Year
  Sex: Male

DRUGS (5)
  1. EMTRICITABINE\TENOFOVIR [Suspect]
     Active Substance: EMTRICITABINE\TENOFOVIR
     Indication: HIV infection
     Dosage: 1 DOSAGE FORM, QD
     Route: 048
     Dates: start: 20171003, end: 20240910
  2. TIVICAY [Suspect]
     Active Substance: DOLUTEGRAVIR SODIUM
     Indication: HIV infection
     Dosage: 1 DOSAGE FORM, QD
     Route: 048
     Dates: start: 20171003, end: 20240910
  3. LIDOCAINE\TRIBENOSIDE [Concomitant]
     Active Substance: LIDOCAINE\TRIBENOSIDE
     Indication: Haemorrhoids
     Dosage: UNK
     Dates: end: 20200120
  4. LIDOCAINE\TRIBENOSIDE [Concomitant]
     Active Substance: LIDOCAINE\TRIBENOSIDE
     Dosage: UNK
     Dates: start: 20201120
  5. GENTAMICIN SULFATE [Concomitant]
     Active Substance: GENTAMICIN SULFATE
     Indication: Haemorrhoids
     Dosage: UNK
     Dates: end: 20200120

REACTIONS (9)
  - Contusion [Recovered/Resolved]
  - Pharyngeal chlamydia infection [Recovering/Resolving]
  - Blood uric acid increased [Recovered/Resolved]
  - Tinea pedis [Recovering/Resolving]
  - Acne [Recovering/Resolving]
  - Pruritus genital [Recovering/Resolving]
  - Dry skin [Recovering/Resolving]
  - Seborrhoeic dermatitis [Recovering/Resolving]
  - Pruritus [Recovering/Resolving]

NARRATIVE: CASE EVENT DATE: 20171124
